FAERS Safety Report 5195864-0 (Version None)
Quarter: 2007Q1

REPORT INFORMATION
  Report Type: 
  Country: None (occurrence: None)
  Receive Date: 20070102
  Receipt Date: 20061227
  Transmission Date: 20070707
  Serious: Yes (Other)
  Sender: FDA-Public Use
  Company Number: US-GLAXOSMITHKLINE-A0632602A

PATIENT
  Age: 77 Year
  Sex: Female

DRUGS (2)
  1. PAXIL [Suspect]
     Indication: DRUG USE FOR UNKNOWN INDICATION
     Dosage: 25MG SINGLE DOSE
     Route: 048
     Dates: start: 20061224
  2. AMBIEN [Concomitant]

REACTIONS (4)
  - AMNESIA [None]
  - FALL [None]
  - HALLUCINATION [None]
  - PAIN [None]
